FAERS Safety Report 10543067 (Version 1)
Quarter: 2014Q4

REPORT INFORMATION
  Report Type: Spontaneous
  Country: US (occurrence: None)
  Receive Date: 20141024
  Receipt Date: 20141024
  Transmission Date: 20150529
  Serious: Yes (Other)
  Sender: FDA-Public Use
  Company Number: None

PATIENT
  Age: 66 Year
  Sex: Female
  Weight: 74.84 kg

DRUGS (4)
  1. METHYLPRED [Suspect]
     Active Substance: METHYLPREDNISOLONE
     Indication: CERVICAL SPINAL STENOSIS
     Dosage: 6 DAYS DECLINING USE; START 6 PILLS
     Dates: start: 20140919, end: 20140924
  2. METHOCARBAM 750 MG [Suspect]
     Active Substance: METHOCARBAMOL
     Indication: CERVICAL SPINAL STENOSIS
     Dosage: 1 TAB
     Dates: start: 20140919, end: 20141003
  3. METHYLPRED [Suspect]
     Active Substance: METHYLPREDNISOLONE
     Indication: NERVE COMPRESSION
     Dosage: 6 DAYS DECLINING USE; START 6 PILLS
     Dates: start: 20140919, end: 20140924
  4. METHOCARBAM 750 MG [Suspect]
     Active Substance: METHOCARBAMOL
     Indication: NERVE COMPRESSION
     Dosage: 1 TAB
     Dates: start: 20140919, end: 20141003

REACTIONS (2)
  - Vitreous floaters [None]
  - Photopsia [None]

NARRATIVE: CASE EVENT DATE: 20140920
